FAERS Safety Report 8025620-7 (Version None)
Quarter: 2012Q1

REPORT INFORMATION
  Report Type: 
  Country: None (occurrence: None)
  Receive Date: 20120105
  Receipt Date: 20120103
  Transmission Date: 20120608
  Serious: No
  Sender: FDA-Public Use
  Company Number: US-TEVA-315945USA

PATIENT
  Age: 35 Year
  Sex: Female
  Weight: 52.21 kg

DRUGS (1)
  1. PLAN B ONE-STEP [Suspect]
     Indication: POST COITAL CONTRACEPTION
     Dosage: 1.5 MILLIGRAM;
     Route: 048
     Dates: start: 20111229, end: 20111229

REACTIONS (4)
  - BLOOD URINE PRESENT [None]
  - HEADACHE [None]
  - MENSTRUATION IRREGULAR [None]
  - PELVIC PAIN [None]
